FAERS Safety Report 15686792 (Version 1)
Quarter: 2018Q4

REPORT INFORMATION
  Report Type: Spontaneous
  Country: US (occurrence: US)
  Receive Date: 20181204
  Receipt Date: 20181204
  Transmission Date: 20190205
  Serious: No
  Sender: FDA-Public Use
  Company Number: US-ARRAY-2018-04511

PATIENT

DRUGS (2)
  1. MEKTOVI [Suspect]
     Active Substance: BINIMETINIB
     Indication: PRODUCT USED FOR UNKNOWN INDICATION
     Dosage: UNK
  2. BRAFTOVI [Suspect]
     Active Substance: ENCORAFENIB
     Indication: METASTATIC MALIGNANT MELANOMA
     Dosage: 300 MG, QD
     Dates: start: 20180918, end: 20180919

REACTIONS (4)
  - Pain [Recovered/Resolved]
  - Off label use [Unknown]
  - Generalised erythema [Recovered/Resolved]
  - Lymph node pain [Recovering/Resolving]

NARRATIVE: CASE EVENT DATE: 20180919
